FAERS Safety Report 6705043-0 (Version None)
Quarter: 2010Q2

REPORT INFORMATION
  Report Type: 
  Country: None (occurrence: None)
  Receive Date: 20100430
  Receipt Date: 20100422
  Transmission Date: 20101027
  Serious: Yes (Death)
  Sender: FDA-Public Use
  Company Number: B0648987A

PATIENT
  Sex: Male

DRUGS (2)
  1. LAMICTAL [Suspect]
     Dosage: 2.5MG PER DAY
     Route: 048
     Dates: start: 20090914, end: 20090921
  2. DEPAKENE [Concomitant]
     Dosage: 250MG TWICE PER DAY
     Route: 048
     Dates: end: 20090921

REACTIONS (4)
  - ANOXIA [None]
  - ASPHYXIA [None]
  - DEATH [None]
  - DRUG INEFFECTIVE [None]
